FAERS Safety Report 6665572-5 (Version None)
Quarter: 2010Q2

REPORT INFORMATION
  Report Type: 
  Country: None (occurrence: None)
  Receive Date: 20100402
  Receipt Date: 20100324
  Transmission Date: 20101027
  Serious: Yes (Other)
  Sender: FDA-Public Use
  Company Number: BR-PFIZER INC-2010032833

PATIENT
  Age: 80 Year
  Sex: Female
  Weight: 70 kg

DRUGS (4)
  1. LYRICA [Suspect]
     Indication: NEURALGIA
     Dosage: 1 CAPSULE, 1X/DAY
     Route: 048
     Dates: start: 20100310, end: 20100311
  2. LYRICA [Suspect]
     Dosage: TWO CAPSULES, 1X/DAY AT NIGHT
     Route: 048
     Dates: start: 20100312, end: 20100312
  3. PREDNISOLONE [Concomitant]
     Dosage: 5 MG, UNK
  4. BUDESONIDE/FORMOTEROL FUMARATE [Concomitant]
     Dosage: 12/400UG

REACTIONS (5)
  - CHRONIC OBSTRUCTIVE PULMONARY DISEASE [None]
  - DIZZINESS [None]
  - FEELING ABNORMAL [None]
  - FEELING DRUNK [None]
  - MALAISE [None]
